FAERS Safety Report 7378872-0 (Version None)
Quarter: 2011Q1

REPORT INFORMATION
  Report Type: 
  Country: None (occurrence: None)
  Receive Date: 20110328
  Receipt Date: 20110322
  Transmission Date: 20110831
  Serious: Yes (Death)
  Sender: FDA-Public Use
  Company Number: PHHY2011NL23775

PATIENT
  Sex: Female

DRUGS (2)
  1. ZOMETA [Suspect]
     Dosage: 4 MG/5ML
     Route: 042
     Dates: start: 20110210
  2. ZOMETA [Suspect]
     Indication: BREAST CANCER METASTATIC
     Dosage: 4 MG/5ML
     Route: 042
     Dates: start: 20110106

REACTIONS (2)
  - LUNG NEOPLASM MALIGNANT [None]
  - NEOPLASM MALIGNANT [None]
